FAERS Safety Report 4759329-X (Version None)
Quarter: 2005Q3

REPORT INFORMATION
  Report Type: 
  Country: None (occurrence: None)
  Receive Date: 20050831
  Receipt Date: 20050823
  Transmission Date: 20060218
  Serious: Yes (Hospitalization)
  Sender: FDA-Public Use
  Company Number: 2005116171

PATIENT
  Age: 80 Year
  Sex: Female
  Weight: 100 kg

DRUGS (3)
  1. LYRICA [Suspect]
     Indication: POLYNEUROPATHY
     Dosage: 300 MG (150 MG, BID), ORAL
     Route: 048
     Dates: start: 20050725, end: 20050803
  2. DIGOXIN [Concomitant]
  3. ISOPTIN [Concomitant]

REACTIONS (1)
  - BRADYCARDIA [None]
